FAERS Safety Report 5694374-1 (Version None)
Quarter: 2008Q2

REPORT INFORMATION
  Report Type: 
  Country: None (occurrence: None)
  Receive Date: 20080402
  Receipt Date: 20080327
  Transmission Date: 20081010
  Serious: Yes (Hospitalization)
  Sender: FDA-Public Use
  Company Number: 2008SP005258

PATIENT
  Age: 77 Year
  Sex: Male
  Weight: 80 kg

DRUGS (2)
  1. BETAMETHASONE DIPROPIONATE [Suspect]
     Indication: OSTEOARTHRITIS
     Dosage: 1 ML; QD; IA
     Route: 014
     Dates: start: 20080303, end: 20080303
  2. SODIUM HYALURONATE [Concomitant]

REACTIONS (2)
  - ECCHYMOSIS [None]
  - HAEMARTHROSIS [None]
